FAERS Safety Report 4810008-X (Version None)
Quarter: 2005Q4

REPORT INFORMATION
  Report Type: 
  Country: None (occurrence: None)
  Receive Date: 20051024
  Receipt Date: 20051013
  Transmission Date: 20060501
  Serious: Yes (Death)
  Sender: FDA-Public Use
  Company Number: 032-44

PATIENT
  Age: 75 Year
  Sex: Female

DRUGS (4)
  1. TEVETEN [Suspect]
     Indication: HYPERTENSION
     Dosage: 600 MG PO
     Route: 048
     Dates: start: 20021023
  2. GLIMEPIRIDE [Concomitant]
  3. MIXTARD HUMAN 70/30 [Concomitant]
  4. GEMFIBROZIL [Concomitant]

REACTIONS (1)
  - BLOOD PRESSURE SYSTOLIC ABNORMAL [None]
